FAERS Safety Report 4309602-4 (Version None)
Quarter: 2004Q1

REPORT INFORMATION
  Report Type: 
  Country: None (occurrence: None)
  Receive Date: 20040302
  Receipt Date: 20040218
  Transmission Date: 20041129
  Serious: Yes (Life-Threatening, Hospitalization)
  Sender: FDA-Public Use
  Company Number: WAES 0402GRC00008

PATIENT
  Age: 17 Year
  Sex: Female

DRUGS (9)
  1. ASPARAGINASE (AS DRUG) [Concomitant]
  2. ASPARAGINASE (AS DRUG) [Concomitant]
  3. CYCLOPHOSPHAMIDE [Concomitant]
  4. CYTARABINE [Concomitant]
  5. DECADRON [Suspect]
     Indication: ACUTE LYMPHOCYTIC LEUKAEMIA
     Route: 048
  6. DECADRON [Suspect]
     Route: 048
  7. METHOTREXATE [Concomitant]
  8. VINCRISTINE SULFATE [Concomitant]
  9. VINCRISTINE SULFATE [Concomitant]

REACTIONS (7)
  - MENTAL STATUS CHANGES [None]
  - MUCOSAL INFLAMMATION [None]
  - MYOPATHY [None]
  - PANCYTOPENIA [None]
  - SYSTEMIC CANDIDA [None]
  - THERAPY NON-RESPONDER [None]
  - UPPER GASTROINTESTINAL HAEMORRHAGE [None]
